FAERS Safety Report 7901114-1 (Version None)
Quarter: 2011Q4

REPORT INFORMATION
  Report Type: 
  Country: None (occurrence: None)
  Receive Date: 20111108
  Receipt Date: 20111028
  Transmission Date: 20120403
  Serious: No
  Sender: FDA-Public Use
  Company Number: US-B.I. PHARMACEUTICALS,INC./RIDGEFIELD-2011-BP-22166BP

PATIENT
  Sex: Female

DRUGS (19)
  1. ALBUTEROL [Suspect]
  2. ALLEGRA D 24 HOUR [Concomitant]
     Indication: HYPERSENSITIVITY
  3. CENTRUM SILVER [Concomitant]
  4. SPIRIVA [Suspect]
     Indication: CHRONIC OBSTRUCTIVE PULMONARY DISEASE
     Dosage: 18 MCG
     Route: 055
     Dates: start: 20070301
  5. ISOSORBIDE DINITRATE [Concomitant]
     Dosage: 30 MG
  6. CRESTOR [Concomitant]
     Indication: BLOOD CHOLESTEROL INCREASED
     Dosage: 5 MG
     Route: 048
  7. CALTRATE D [Concomitant]
     Indication: ROUTINE HEALTH MAINTENANCE
  8. ADVAIR DISKUS 100/50 [Suspect]
     Indication: CHRONIC OBSTRUCTIVE PULMONARY DISEASE
     Route: 055
  9. ASPIRIN [Concomitant]
     Indication: ROUTINE HEALTH MAINTENANCE
     Dosage: 81 MG
  10. O2 [Concomitant]
     Indication: CHRONIC OBSTRUCTIVE PULMONARY DISEASE
  11. ALBUTEROL [Suspect]
     Indication: CHRONIC OBSTRUCTIVE PULMONARY DISEASE
     Route: 055
  12. TRIAMTERENE AND HYDROCHLOROTHIAZIDE [Concomitant]
     Indication: HYPERTENSION
     Route: 048
  13. NASONEX [Concomitant]
     Indication: CHRONIC OBSTRUCTIVE PULMONARY DISEASE
     Route: 055
  14. ATENOLOL [Concomitant]
     Indication: HYPERTENSION
     Dosage: 50 MG
     Route: 048
  15. OMEPRAZOLE [Concomitant]
     Indication: GASTROOESOPHAGEAL REFLUX DISEASE
     Dosage: 20 MG
     Route: 048
  16. GARLIC [Concomitant]
     Dosage: 2500 MG
  17. ASCORBIC ACID [Concomitant]
     Dosage: 1000 MG
  18. ZETIA [Concomitant]
     Indication: BLOOD CHOLESTEROL INCREASED
     Dosage: 10 MG
     Route: 048
  19. AMBIEN [Concomitant]
     Dosage: 5 MG

REACTIONS (7)
  - TONGUE DISCOLOURATION [None]
  - HEADACHE [None]
  - ASTHENIA [None]
  - GENERAL PHYSICAL HEALTH DETERIORATION [None]
  - GENERAL PHYSICAL CONDITION ABNORMAL [None]
  - DRY MOUTH [None]
  - DYSPNOEA [None]
